FAERS Safety Report 9841355 (Version 1)
Quarter: 2014Q1

REPORT INFORMATION
  Report Type: Spontaneous
  Country: US (occurrence: US)
  Receive Date: 20140124
  Receipt Date: 20140124
  Transmission Date: 20141002
  Serious: No
  Sender: FDA-Public Use
  Company Number: US-BAYER-2014-010364

PATIENT
  Age: 43 Year
  Sex: Female

DRUGS (3)
  1. ALEVE CAPLET [Suspect]
     Indication: ARTHRITIS
     Dosage: 3 DF, EVERY SIX HOURS FOR 2 DAYS
     Dates: start: 20131212, end: 20131213
  2. ALEVE CAPLET [Suspect]
     Indication: ARTHRITIS
     Dosage: 2 DF, PRN
     Route: 048
     Dates: start: 20140113
  3. LEVOTHYROXINE [Concomitant]

REACTIONS (3)
  - Therapeutic response unexpected [None]
  - Extra dose administered [None]
  - Drug ineffective [None]
